FAERS Safety Report 21281439 (Version 1)
Quarter: 2022Q3

REPORT INFORMATION
  Report Type: Spontaneous
  Country: US (occurrence: US)
  Receive Date: 20220901
  Receipt Date: 20220901
  Transmission Date: 20221026
  Serious: No
  Sender: FDA-Public Use
  Company Number: US-ALLERGAN-2207896US

PATIENT
  Sex: Female

DRUGS (22)
  1. SAPHRIS [Suspect]
     Active Substance: ASENAPINE MALEATE
     Indication: Bipolar disorder
     Dosage: 15 MG, QD
     Route: 060
  2. SAPHRIS [Suspect]
     Active Substance: ASENAPINE MALEATE
     Dosage: 10 MG, QD
     Route: 060
     Dates: start: 2009
  3. CRESTOR [Concomitant]
     Active Substance: ROSUVASTATIN CALCIUM
  4. POTASSIUM CHLORIDE [Concomitant]
     Active Substance: POTASSIUM CHLORIDE
  5. MYRBETRIQ [Concomitant]
     Active Substance: MIRABEGRON
  6. OMEPRAZOLE [Concomitant]
     Active Substance: OMEPRAZOLE
  7. METFORMIN [Concomitant]
     Active Substance: METFORMIN HYDROCHLORIDE
  8. MAGNESIUM [Concomitant]
     Active Substance: MAGNESIUM
  9. LIDODERM [Concomitant]
     Active Substance: LIDOCAINE
     Dosage: UNK UNK, PRN
  10. HYDROXYZINE PAMOATE [Concomitant]
     Active Substance: HYDROXYZINE PAMOATE
  11. GABAPENTIN [Concomitant]
     Active Substance: GABAPENTIN
     Dosage: AS NEEDED
  12. FUROSEMIDE [Concomitant]
     Active Substance: FUROSEMIDE
  13. FLUTICASONE [Concomitant]
     Active Substance: FLUTICASONE
  14. LEXAPRO [Concomitant]
     Active Substance: ESCITALOPRAM OXALATE
  15. DIVALPROEX SODIUM [Concomitant]
     Active Substance: DIVALPROEX SODIUM
  16. VITAMIN D NOS [Concomitant]
     Active Substance: VITAMIN D NOS
  17. CALCIUM [Concomitant]
     Active Substance: CALCIUM
  18. SYMBICORT [Concomitant]
     Active Substance: BUDESONIDE\FORMOTEROL FUMARATE DIHYDRATE
  19. ASPIRIN [Concomitant]
     Active Substance: ASPIRIN
  20. ALBUTEROL [Concomitant]
     Active Substance: ALBUTEROL
  21. LISINOPRIL [Concomitant]
     Active Substance: LISINOPRIL
  22. BENZTROPINE [Concomitant]
     Active Substance: BENZTROPINE

REACTIONS (1)
  - Glossodynia [Unknown]
